FAERS Safety Report 15301299 (Version 1)
Quarter: 2018Q3

REPORT INFORMATION
  Report Type: Spontaneous
  Country: US (occurrence: US)
  Receive Date: 20180821
  Receipt Date: 20180821
  Transmission Date: 20181010
  Serious: No
  Sender: FDA-Public Use
  Company Number: US-MALLINCKRODT-T201801200

PATIENT
  Age: 66 Year
  Sex: Female

DRUGS (1)
  1. OXYCODONE/ACETAMINOPHEN [Suspect]
     Active Substance: ACETAMINOPHEN\OXYCODONE HYDROCHLORIDE
     Indication: PAIN
     Dosage: 10/325 MG
     Route: 048

REACTIONS (5)
  - Back pain [Unknown]
  - Drug ineffective [Unknown]
  - Nervousness [Unknown]
  - Hypoaesthesia [Unknown]
  - Malaise [Unknown]
